FAERS Safety Report 19238671 (Version 2)
Quarter: 2021Q3

REPORT INFORMATION
  Report Type: Spontaneous
  Country: US (occurrence: US)
  Receive Date: 20210510
  Receipt Date: 20210702
  Transmission Date: 20211014
  Serious: Yes (Other)
  Sender: FDA-Public Use
  Company Number: US-TAKEDA-2021TUS028130

PATIENT
  Sex: Male
  Weight: 40.2 kg

DRUGS (1)
  1. CEPROTIN [Suspect]
     Active Substance: PROTEIN C
     Indication: PROTEIN C DEFICIENCY
     Dosage: 4000 INTERNATIONAL UNIT, QD
     Route: 058
     Dates: start: 20041111

REACTIONS (2)
  - Vascular device infection [Unknown]
  - Incorrect route of product administration [Unknown]
